FAERS Safety Report 10751651 (Version 9)
Quarter: 2021Q4

REPORT INFORMATION
  Report Type: Report from Study
  Country: US (occurrence: US)
  Receive Date: 20150130
  Receipt Date: 20211210
  Transmission Date: 20220303
  Serious: Yes (Other)
  Sender: FDA-Public Use
  Company Number: US-SA-2015SA000576

PATIENT
  Age: 60 Year
  Sex: Female

DRUGS (5)
  1. TERIFLUNOMIDE [Suspect]
     Active Substance: TERIFLUNOMIDE
     Indication: Multiple sclerosis
     Dosage: 14 MG,QD
     Route: 048
     Dates: start: 20141127
  2. TERIFLUNOMIDE [Suspect]
     Active Substance: TERIFLUNOMIDE
     Dosage: 14 MG,QD
     Route: 048
     Dates: start: 20141205
  3. TERIFLUNOMIDE [Suspect]
     Active Substance: TERIFLUNOMIDE
     Dosage: 14 MG,QD
     Route: 048
  4. PREVACID [Suspect]
     Active Substance: LANSOPRAZOLE
     Indication: Rash
  5. BENADRYL [Concomitant]
     Active Substance: DIPHENHYDRAMINE HYDROCHLORIDE

REACTIONS (25)
  - Eye disorder [Unknown]
  - Balance disorder [Unknown]
  - Fall [Unknown]
  - Injury [Unknown]
  - Temperature intolerance [Unknown]
  - Musculoskeletal stiffness [Unknown]
  - Gait disturbance [Unknown]
  - Swelling face [Unknown]
  - Nervousness [Not Recovered/Not Resolved]
  - Visual impairment [Recovered/Resolved]
  - Fatigue [Recovered/Resolved]
  - Hypoacusis [Recovered/Resolved]
  - Muscle spasms [Unknown]
  - Back pain [Unknown]
  - Abdominal pain [Unknown]
  - Paraesthesia [Recovered/Resolved]
  - Alopecia [Unknown]
  - Alopecia [Unknown]
  - Product dose omission issue [Unknown]
  - Physiotherapy [Recovering/Resolving]
  - Clavicle fracture [Unknown]
  - Periarthritis [Unknown]
  - Bursitis [Unknown]
  - Plantar fasciitis [Unknown]
  - Rash [Recovered/Resolved]

NARRATIVE: CASE EVENT DATE: 20141201
